FAERS Safety Report 17849933 (Version 1)
Quarter: 2020Q2

REPORT INFORMATION
  Report Type: Spontaneous
  Country: GB (occurrence: GB)
  Receive Date: 20200602
  Receipt Date: 20200602
  Transmission Date: 20200714
  Serious: Yes (Other)
  Sender: FDA-Public Use
  Company Number: GB-ACCORD-183810

PATIENT
  Age: 74 Year
  Sex: Female
  Weight: 86 kg

DRUGS (9)
  1. CLOPIDOGREL [Concomitant]
     Active Substance: CLOPIDOGREL BISULFATE
     Dates: start: 20200213
  2. SALBUTAMOL [Concomitant]
     Active Substance: ALBUTEROL
     Route: 055
     Dates: start: 20200128
  3. RANITIDINE. [Concomitant]
     Active Substance: RANITIDINE
     Dates: start: 20200128, end: 20200420
  4. GLICLAZIDE [Concomitant]
     Active Substance: GLICLAZIDE
     Dosage: TAKE IN THE EVENING
     Dates: start: 20191108
  5. RAMIPRIL. [Suspect]
     Active Substance: RAMIPRIL
     Indication: PRODUCT USED FOR UNKNOWN INDICATION
     Dates: start: 20200324
  6. IBUPROFEN. [Concomitant]
     Active Substance: IBUPROFEN
     Dosage: APPLY 3-4 TIMES/DAY
     Dates: start: 20191126
  7. METFORMIN [Concomitant]
     Active Substance: METFORMIN HYDROCHLORIDE
     Dosage: TAKE WITH BREAKFAST AND WITH MAIN MEAL ...
     Dates: start: 20191108
  8. LANSOPRAZOLE. [Concomitant]
     Active Substance: LANSOPRAZOLE
     Dosage: INCREASE TO TWO IF...
     Dates: start: 20200420
  9. ATORVASTATIN [Concomitant]
     Active Substance: ATORVASTATIN
     Dosage: TAKE AT NIGHT
     Dates: start: 20200213, end: 20200227

REACTIONS (2)
  - Blood potassium increased [Recovered/Resolved]
  - Blood sodium decreased [Recovered/Resolved]

NARRATIVE: CASE EVENT DATE: 20200515
